FAERS Safety Report 10638285 (Version 1)
Quarter: 2014Q4

REPORT INFORMATION
  Report Type: Spontaneous
  Country: US (occurrence: None)
  Receive Date: 20141204
  Receipt Date: 20141204
  Transmission Date: 20150529
  Serious: Yes (Hospitalization)
  Sender: FDA-Public Use
  Company Number: BR14-429-AE

PATIENT
  Age: 2 Year
  Sex: Female

DRUGS (1)
  1. BUPRENORPHINE/ NALOXONE [Suspect]
     Active Substance: BUPRENORPHINE\NALOXONE
     Dosage: 1 PILL, ORAL
     Route: 048
     Dates: start: 20141110

REACTIONS (1)
  - Accidental exposure to product by child [None]

NARRATIVE: CASE EVENT DATE: 20141110
